FAERS Safety Report 14691532 (Version 1)
Quarter: 2018Q1

REPORT INFORMATION
  Report Type: Spontaneous
  Country: CH (occurrence: CH)
  Receive Date: 20180328
  Receipt Date: 20180328
  Transmission Date: 20180509
  Serious: Yes (Hospitalization)
  Sender: FDA-Public Use
  Company Number: CH-ASTRAZENECA-2018SE35566

PATIENT
  Sex: Female

DRUGS (13)
  1. TORASEMIDE [Concomitant]
     Active Substance: TORSEMIDE
  2. ATORVASTATIN [Concomitant]
     Active Substance: ATORVASTATIN
  3. CATAPRESAN [Suspect]
     Active Substance: CLONIDINE
     Route: 048
     Dates: start: 201705, end: 20180220
  4. ATACAND PLUS [Concomitant]
     Active Substance: CANDESARTAN CILEXETIL\HYDROCHLOROTHIAZIDE
     Dates: end: 2017
  5. NOVONORM [Concomitant]
     Active Substance: REPAGLINIDE
  6. ZANIDIP [Concomitant]
     Active Substance: LERCANIDIPINE HYDROCHLORIDE
     Dates: end: 2017
  7. RESONIUM [Concomitant]
     Active Substance: SODIUM POLYSTYRENE SULFONATE
     Dates: end: 20180201
  8. ANXIOLIT [Suspect]
     Active Substance: OXAZEPAM
     Route: 048
  9. NEXIUM MUPS [Suspect]
     Active Substance: ESOMEPRAZOLE MAGNESIUM
     Route: 048
  10. ZYLORIC [Suspect]
     Active Substance: ALLOPURINOL
     Route: 048
  11. NEPHROTRANS [Concomitant]
     Active Substance: SODIUM BICARBONATE
  12. VITARUBIN [Concomitant]
     Active Substance: CYANOCOBALAMIN
     Dates: start: 201801
  13. SINTROM [Concomitant]
     Active Substance: ACENOCOUMAROL
     Dates: start: 201802

REACTIONS (1)
  - Psychiatric symptom [Unknown]

NARRATIVE: CASE EVENT DATE: 2017
